FAERS Safety Report 23492559 (Version 1)
Quarter: 2024Q1

REPORT INFORMATION
  Report Type: Spontaneous
  Country: GB (occurrence: GB)
  Receive Date: 20240207
  Receipt Date: 20240207
  Transmission Date: 20240410
  Serious: No
  Sender: FDA-Public Use
  Company Number: None

PATIENT
  Age: 52 Year
  Sex: Female
  Weight: 70 kg

DRUGS (3)
  1. EZETIMIBE [Suspect]
     Active Substance: EZETIMIBE
     Indication: Hyperlipidaemia
     Dosage: UNK, QD (ONE TO BE TAKEN EACH DAY)
     Route: 065
     Dates: start: 20231114, end: 20231212
  2. METFORMIN [Concomitant]
     Active Substance: METFORMIN HYDROCHLORIDE
     Indication: Product used for unknown indication
     Dosage: UNK, QD (THREE TO BE TAKEN ONCE A DAY WITH EVENING MEAL)
     Route: 065
     Dates: start: 20230928
  3. ROSUVASTATIN [Concomitant]
     Active Substance: ROSUVASTATIN
     Indication: Hyperlipidaemia
     Dosage: UNK (ONE TO BE TAKEN EACH OTHER DAY FOR ONE WEEK THEN INCREASE TO ONCE A DAY IF TOLERATED)
     Route: 065
     Dates: start: 20231011, end: 20231114

REACTIONS (2)
  - Hypoaesthesia [Recovering/Resolving]
  - Myalgia [Recovering/Resolving]
